FAERS Safety Report 9055244 (Version 2)
Quarter: 2013Q1

REPORT INFORMATION
  Report Type: Spontaneous
  Country: JP (occurrence: JP)
  Receive Date: 20130206
  Receipt Date: 20130318
  Transmission Date: 20140127
  Serious: Yes (Hospitalization, Other)
  Sender: FDA-Public Use
  Company Number: PHHY2013JP007811

PATIENT
  Age: 47 Year
  Sex: Male
  Weight: 54 kg

DRUGS (2)
  1. DICLOFENAC [Suspect]
     Indication: PYREXIA
     Dosage: 50 MG, (TOTAL 5 DOSES)
     Route: 048
  2. DICLOFENAC [Suspect]
     Indication: ABDOMINAL PAIN
     Dosage: 25 MG (TOTAL OF 10 DOSES)
     Route: 048

REACTIONS (13)
  - Gastrointestinal disorder [Recovering/Resolving]
  - Gastrointestinal stenosis [Recovering/Resolving]
  - Gastrointestinal obstruction [Recovering/Resolving]
  - Ileal stenosis [Recovering/Resolving]
  - Ileus [Recovering/Resolving]
  - Hypoproteinaemia [Recovering/Resolving]
  - Colitis [Recovering/Resolving]
  - Ileal ulcer [Recovering/Resolving]
  - Scar [Recovering/Resolving]
  - Abdominal pain [Recovering/Resolving]
  - Fibrosis [Recovering/Resolving]
  - Hyperplasia [Recovering/Resolving]
  - Anaemia [Recovering/Resolving]
